FAERS Safety Report 23299078 (Version 1)
Quarter: 2023Q4

REPORT INFORMATION
  Report Type: Spontaneous
  Country: US (occurrence: US)
  Receive Date: 20231215
  Receipt Date: 20231215
  Transmission Date: 20240110
  Serious: No
  Sender: FDA-Public Use
  Company Number: ENDB23-02845

PATIENT
  Sex: Male

DRUGS (2)
  1. XIAFLEX [Suspect]
     Active Substance: COLLAGENASE CLOSTRIDIUM HISTOLYTICUM
     Indication: Peyronie^s disease
     Dosage: 0.58 MG, UNKNOWN (FIRST SHOT)
     Route: 026
  2. XIAFLEX [Suspect]
     Active Substance: COLLAGENASE CLOSTRIDIUM HISTOLYTICUM
     Dosage: 0.58 MG, UNKNOWN (SECOND SHOT)
     Route: 026

REACTIONS (6)
  - Genital burning sensation [Unknown]
  - Genital pain [Unknown]
  - Dizziness [Unknown]
  - Genital swelling [Unknown]
  - Injection site pain [Unknown]
  - Injection site discomfort [Unknown]
